FAERS Safety Report 5512660-2 (Version None)
Quarter: 2007Q4

REPORT INFORMATION
  Report Type: 
  Country: None (occurrence: None)
  Receive Date: 20071107
  Receipt Date: 20071022
  Transmission Date: 20080405
  Serious: Yes (Hospitalization)
  Sender: FDA-Public Use
  Company Number: PAR_01773_2007

PATIENT
  Age: 48 Year
  Sex: Female

DRUGS (2)
  1. DOXEPIN (DOXEPIN) [Suspect]
     Indication: MAJOR DEPRESSION
     Dosage: (4000 MG NOT THE PRESCRIBED AMOUNT)
  2. ZOLPIDEM [Suspect]
     Indication: DRUG USE FOR UNKNOWN INDICATION
     Dosage: (100 MG NOT THE PRESCRIBED AMOUNT)

REACTIONS (5)
  - COMA [None]
  - CONVULSION [None]
  - HAEMOPERFUSION [None]
  - OVERDOSE [None]
  - RESPIRATORY FAILURE [None]
